FAERS Safety Report 5926486-9 (Version None)
Quarter: 2008Q4

REPORT INFORMATION
  Report Type: 
  Country: None (occurrence: None)
  Receive Date: 20081022
  Receipt Date: 20081014
  Transmission Date: 20090506
  Serious: Yes (Other)
  Sender: FDA-Public Use
  Company Number: PHEH2008US09326

PATIENT

DRUGS (1)
  1. MIACALCIN [Suspect]

REACTIONS (3)
  - ASTHMA [None]
  - OSTEOPOROSIS [None]
  - REFLUX OESOPHAGITIS [None]
